FAERS Safety Report 16716711 (Version 2)
Quarter: 2019Q3

REPORT INFORMATION
  Report Type: Spontaneous
  Country: IT (occurrence: IT)
  Receive Date: 20190819
  Receipt Date: 20190916
  Transmission Date: 20191005
  Serious: Yes (Hospitalization)
  Sender: FDA-Public Use
  Company Number: IT-VERTEX PHARMACEUTICALS-2019-007592

PATIENT
  Sex: Male

DRUGS (11)
  1. REVINTY ELLIPTA [Concomitant]
     Active Substance: FLUTICASONE FUROATE\VILANTEROL TRIFENATATE
     Dosage: 2 PUFFS MORNING
  2. PROMIXIN [COLISTIMETHATE SODIUM] [Concomitant]
     Dosage: 1 VIAL, BID; ALTERNATED WITH CAYSTON
  3. PROTHERA [Concomitant]
     Dosage: 1 BAG PER DAY
  4. ORKAMBI [Suspect]
     Active Substance: IVACAFTOR\LUMACAFTOR
     Indication: CYSTIC FIBROSIS
     Dosage: 2 DOSAGE FORM, BID
     Route: 048
     Dates: start: 20160115
  5. DEURSIL [Concomitant]
     Active Substance: URSODIOL
     Dosage: 450 MG 1 TAB. TWICE A DAY
  6. PERIDON [RISPERIDONE] [Concomitant]
     Dosage: 1 TAB. 3 TIMES/DAY, 20 MINUTES BEFORE MEALS
  7. CAYSTON [Concomitant]
     Active Substance: AZTREONAM
     Dosage: 1 VIAL, TID ALTERNATED WITH PROMIXIN
  8. ATEM [Concomitant]
     Active Substance: IPRATROPIUM BROMIDE
     Dosage: 1 VIAL THREE TIMES A DAY
  9. BRONCOVALEAS [SALBUTAMOL] [Concomitant]
     Dosage: SPRAY 4 PUFFS
  10. DIBASE [Concomitant]
     Active Substance: CHOLECALCIFEROL
     Dosage: 10,000 DROPS, 8 DROPS PER DAY
  11. PULMOZYME [Concomitant]
     Active Substance: DORNASE ALFA
     Dosage: 1 VIAL PER DAY

REACTIONS (2)
  - Cystic fibrosis lung [Unknown]
  - Infective pulmonary exacerbation of cystic fibrosis [Unknown]

NARRATIVE: CASE EVENT DATE: 2017
